FAERS Safety Report 10166997 (Version 1)
Quarter: 2014Q2

REPORT INFORMATION
  Report Type: Spontaneous
  Country: IN (occurrence: None)
  Receive Date: 20140508
  Receipt Date: 20140508
  Transmission Date: 20141212
  Serious: Yes (Hospitalization)
  Sender: FDA-Public Use
  Company Number: VAL_03096_2014

PATIENT
  Age: 8 Year
  Sex: Male

DRUGS (1)
  1. CARBAMAZEPINE (CARBAMAZEPINE) [Suspect]
     Indication: IDIOPATHIC GENERALISED EPILEPSY
     Dosage: PER DAY

REACTIONS (3)
  - Syncope [None]
  - Ventricular extrasystoles [None]
  - Heart rate irregular [None]
